FAERS Safety Report 10728695 (Version 1)
Quarter: 2015Q1

REPORT INFORMATION
  Report Type: Spontaneous
  Country: US (occurrence: None)
  Receive Date: 20150120
  Receipt Date: 20150120
  Transmission Date: 20150721
  Serious: Yes (Life-Threatening, Hospitalization, Disabling)
  Sender: FDA-Public Use
  Company Number: None

PATIENT
  Age: 65 Year
  Sex: Male
  Weight: 116 kg

DRUGS (23)
  1. HUMULIN R PERCOCET [Concomitant]
  2. DINITRATE ER [Concomitant]
  3. NITROSTAT [Concomitant]
     Active Substance: NITROGLYCERIN
  4. METOPROLOL TARTRATE. [Concomitant]
     Active Substance: METOPROLOL TARTRATE
  5. ARTIFICIAL TEARS [Concomitant]
     Active Substance: GLYCERIN\HYPROMELLOSES\POLYETHYLENE GLYCOL 400
  6. FOSINOPRIL SODIUM. [Concomitant]
     Active Substance: FOSINOPRIL SODIUM
  7. RANEXA [Concomitant]
     Active Substance: RANOLAZINE
  8. HYDROCHLOROTHIAZIDE. [Concomitant]
     Active Substance: HYDROCHLOROTHIAZIDE
  9. FLUSH BLUE [Concomitant]
  10. VANCOMYCIN HCL [Concomitant]
     Active Substance: VANCOMYCIN HYDROCHLORIDE
  11. ISOSORBIDE [Concomitant]
     Active Substance: ISOSORBIDE
  12. NORMAL SALINE FLUSH [Concomitant]
     Active Substance: SODIUM CHLORIDE
  13. HEPARIN [Concomitant]
     Active Substance: HEPARIN SODIUM
  14. LOSARTAN [Concomitant]
     Active Substance: LOSARTAN
  15. VITAMIN D [Concomitant]
     Active Substance: CHOLECALCIFEROL
  16. NOVOLIN [Concomitant]
     Active Substance: INSULIN HUMAN
  17. FISH OIL [Concomitant]
     Active Substance: FISH OIL
  18. OMEPRAZOLE. [Concomitant]
     Active Substance: OMEPRAZOLE
  19. VANCOMYCIN [Suspect]
     Active Substance: VANCOMYCIN
     Indication: SKIN INFECTION
     Route: 042
     Dates: start: 20141209, end: 20141229
  20. ASPIRIN ADULT LOW STRENGTH [Concomitant]
     Active Substance: ASPIRIN
  21. PLAVIX [Concomitant]
     Active Substance: CLOPIDOGREL BISULFATE
  22. CRESTOR [Concomitant]
     Active Substance: ROSUVASTATIN CALCIUM
  23. POTASSIUM [Concomitant]
     Active Substance: POTASSIUM

REACTIONS (1)
  - Acute kidney injury [None]

NARRATIVE: CASE EVENT DATE: 20141229
